FAERS Safety Report 8841908 (Version 2)
Quarter: 2012Q4

REPORT INFORMATION
  Report Type: 
  Country: US (occurrence: US)
  Receive Date: 20121016
  Receipt Date: 20121108
  Transmission Date: 20130627
  Serious: No
  Sender: FDA-Public Use
  Company Number: US-BAYER-2012-104989

PATIENT
  Age: 44 Year
  Sex: Male

DRUGS (1)
  1. GADAVIST [Suspect]
     Dosage: 10 ml, UNK

REACTIONS (3)
  - Nausea [None]
  - Vomiting [None]
  - Hyperhidrosis [None]
